FAERS Safety Report 20737198 (Version 7)
Quarter: 2023Q1

REPORT INFORMATION
  Report Type: Spontaneous
  Country: JP (occurrence: JP)
  Receive Date: 20220421
  Receipt Date: 20230317
  Transmission Date: 20230418
  Serious: Yes (Life-Threatening, Hospitalization, Other)
  Sender: FDA-Public Use
  Company Number: JP-SA-2022SA137044

PATIENT
  Age: 10 Month
  Sex: Male
  Weight: 10.4 kg

DRUGS (17)
  1. SABRIL [Suspect]
     Active Substance: VIGABATRIN
     Indication: Infantile spasms
     Dosage: 225 MG, BID
     Route: 048
     Dates: start: 20210302, end: 20210304
  2. SABRIL [Suspect]
     Active Substance: VIGABATRIN
     Dosage: 450 MG, BID
     Route: 048
     Dates: start: 20210305, end: 20210907
  3. SABRIL [Suspect]
     Active Substance: VIGABATRIN
     Dosage: 550 MG, BID
     Route: 048
     Dates: start: 20210908, end: 20211021
  4. SABRIL [Suspect]
     Active Substance: VIGABATRIN
     Dosage: 650 MG, BID
     Route: 048
     Dates: start: 20211022, end: 20220421
  5. SABRIL [Suspect]
     Active Substance: VIGABATRIN
     Dosage: 750 MG, BID
     Route: 048
     Dates: start: 20220422, end: 20220623
  6. SABRIL [Suspect]
     Active Substance: VIGABATRIN
     Dosage: 500 MG, BID
     Route: 048
     Dates: start: 20220624, end: 20221124
  7. SABRIL [Suspect]
     Active Substance: VIGABATRIN
     Dosage: 375 MG, BID
     Route: 048
     Dates: start: 20221125, end: 20221211
  8. SABRIL [Suspect]
     Active Substance: VIGABATRIN
     Dosage: 250 MG, BID
     Route: 048
     Dates: start: 20221212, end: 20230122
  9. SABRIL [Suspect]
     Active Substance: VIGABATRIN
     Dosage: 125 MG, BID
     Route: 048
     Dates: start: 20230123, end: 20230216
  10. VALPROATE SODIUM [Concomitant]
     Active Substance: VALPROATE SODIUM
     Indication: Infantile spasms
     Dosage: DAILY DOSE: 200 MG
     Route: 048
     Dates: end: 20220127
  11. VALPROATE SODIUM [Concomitant]
     Active Substance: VALPROATE SODIUM
     Dosage: DAILY DOSE: 250 MG
     Route: 048
     Dates: start: 20220128
  12. ZONISAMIDE [Concomitant]
     Active Substance: ZONISAMIDE
     Indication: Infantile spasms
     Dosage: DAILY DOSE: 50 MG
     Route: 048
     Dates: end: 20210225
  13. ZONISAMIDE [Concomitant]
     Active Substance: ZONISAMIDE
     Dosage: DAILY DOSE: 70 MG
     Route: 048
     Dates: start: 20210224
  14. ADENOSINE TRIPHOSPHATE DISODIUM [Concomitant]
     Active Substance: ADENOSINE TRIPHOSPHATE DISODIUM
     Indication: Supraventricular tachycardia
     Dosage: DAILY DOSE: 13 MG
     Route: 042
     Dates: start: 20210415, end: 20210415
  15. CARNITINE HYDROCHLORIDE [Concomitant]
     Indication: Prophylaxis
     Dosage: DAILY DOSE: 400 MG
     Route: 048
  16. CARNITINE HYDROCHLORIDE [Concomitant]
     Indication: Investigation
  17. RYTHMODAN [DISOPYRAMIDE] [Concomitant]
     Indication: Supraventricular tachycardia
     Dosage: DAILY DOSE: 120 MG
     Route: 048

REACTIONS (5)
  - Supraventricular tachycardia [Recovered/Resolved]
  - Febrile convulsion [Recovered/Resolved]
  - COVID-19 [Recovered/Resolved]
  - Febrile convulsion [Recovered/Resolved]
  - Retinogram abnormal [Not Recovered/Not Resolved]

NARRATIVE: CASE EVENT DATE: 20210415
